FAERS Safety Report 4328671-9 (Version None)
Quarter: 2004Q1

REPORT INFORMATION
  Report Type: 
  Country: None (occurrence: None)
  Receive Date: 20040322
  Receipt Date: 20040309
  Transmission Date: 20041129
  Serious: Yes (Other)
  Sender: FDA-Public Use
  Company Number: HQWYE524603MAR04

PATIENT
  Age: 28 Year
  Sex: Male

DRUGS (2)
  1. BENEFIX (NONACOG ALFA, INJECTION) LOT NO.: 03105A034 [Suspect]
     Indication: FACTOR IX DEFICIENCY
     Dosage: 5000 IU 2XPER 1 WK, INTRAVENOUS
     Route: 042
     Dates: start: 20040211, end: 20040212
  2. BENEFIX (NONACOG ALFA, INJECTION) LOT NO.: 03105A034 [Suspect]
     Indication: FACTOR IX DEFICIENCY
     Dosage: 5000 IU 2XPER 1 WK, INTRAVENOUS
     Route: 042
     Dates: start: 20040217, end: 20040218

REACTIONS (8)
  - ABDOMINAL PAIN [None]
  - BLOOD ALKALINE PHOSPHATASE INCREASED [None]
  - DIZZINESS [None]
  - DYSPNOEA [None]
  - FEELING ABNORMAL [None]
  - HAEMOGLOBIN INCREASED [None]
  - HOT FLUSH [None]
  - HYPERSENSITIVITY [None]
